FAERS Safety Report 19112224 (Version 4)
Quarter: 2021Q3

REPORT INFORMATION
  Report Type: Spontaneous
  Country: JP (occurrence: JP)
  Receive Date: 20210409
  Receipt Date: 20210705
  Transmission Date: 20211014
  Serious: Yes (Death, Hospitalization, Other)
  Sender: FDA-Public Use
  Company Number: NVSJ2021JP003237

PATIENT
  Age: 91 Year
  Sex: Male
  Weight: 35.6 kg

DRUGS (11)
  1. MIYA?BM [Concomitant]
     Active Substance: CLOSTRIDIUM BUTYRICUM SPORES STRAIN M-55
     Indication: ENTEROCOLITIS
     Dosage: 1 DF, TID
     Route: 048
     Dates: start: 20210227, end: 20210314
  2. ENTRESTO [Suspect]
     Active Substance: SACUBITRIL\VALSARTAN
     Indication: CARDIAC FAILURE
     Dosage: 50 MG, BID
     Route: 048
     Dates: start: 202101, end: 20210128
  3. WARFARIN [Concomitant]
     Active Substance: WARFARIN
     Indication: ATRIAL FIBRILLATION
     Dosage: 0.5 MG
     Route: 048
     Dates: start: 20210112, end: 20210314
  4. AZOSEMIDE [Concomitant]
     Active Substance: AZOSEMIDE
     Indication: CARDIAC FAILURE
     Dosage: 30 MG
     Route: 048
     Dates: start: 20210122, end: 20210314
  5. YOKUKANSAN [Concomitant]
     Active Substance: HERBALS
     Indication: DISEASE SUSCEPTIBILITY
     Dosage: 2.5 MG, TID
     Route: 048
     Dates: start: 20210111, end: 20210314
  6. LIXIANA [Concomitant]
     Active Substance: EDOXABAN TOSYLATE
     Indication: ATRIAL FIBRILLATION
     Dosage: 30 MG
     Route: 048
     Dates: end: 20210111
  7. TAKECAB [Concomitant]
     Active Substance: VONOPRAZAN FUMARATE
     Indication: PROPHYLAXIS AGAINST GASTROINTESTINAL ULCER
     Dosage: 10 MG
     Route: 048
     Dates: start: 20210113, end: 20210314
  8. ENTRESTO [Suspect]
     Active Substance: SACUBITRIL\VALSARTAN
     Dosage: 50 MG, BID
     Route: 048
     Dates: start: 20210209, end: 20210218
  9. FEBURIC [Concomitant]
     Active Substance: FEBUXOSTAT
     Indication: HYPERURICAEMIA
     Dosage: 10 MG
     Route: 048
     Dates: end: 20210314
  10. AMIODARONE [Concomitant]
     Active Substance: AMIODARONE
     Indication: VENTRICULAR TACHYCARDIA
     Dosage: 50 MG
     Route: 048
     Dates: end: 20210314
  11. SAMSCA [Concomitant]
     Active Substance: TOLVAPTAN
     Indication: CARDIAC FAILURE
     Dosage: 7.5 MG
     Route: 048
     Dates: start: 20210109, end: 20210314

REACTIONS (22)
  - Septic shock [Recovering/Resolving]
  - Alanine aminotransferase increased [Unknown]
  - Ascites [Unknown]
  - Cholangitis [Unknown]
  - Diarrhoea [Unknown]
  - Renal ischaemia [Unknown]
  - Infection [Unknown]
  - General physical health deterioration [Unknown]
  - Renal impairment [Unknown]
  - Aspartate aminotransferase increased [Unknown]
  - Enterocolitis [Unknown]
  - Ventricular tachycardia [Fatal]
  - Concomitant disease aggravated [Fatal]
  - Blood bilirubin increased [Unknown]
  - Congestive hepatopathy [Unknown]
  - Circulatory collapse [Unknown]
  - Blood pressure decreased [Fatal]
  - Cardiac failure [Fatal]
  - Pneumonia [Unknown]
  - Decreased appetite [Unknown]
  - Pyrexia [Unknown]
  - Jaundice [Unknown]

NARRATIVE: CASE EVENT DATE: 20210108
